FAERS Safety Report 13116796 (Version 9)
Quarter: 2018Q1

REPORT INFORMATION
  Report Type: Spontaneous
  Country: US (occurrence: US)
  Receive Date: 20170116
  Receipt Date: 20180131
  Transmission Date: 20180508
  Serious: Yes (Hospitalization, Other)
  Sender: FDA-Public Use
  Company Number: US-PFIZER INC-2017013740

PATIENT
  Age: 61 Year
  Sex: Female

DRUGS (4)
  1. XELJANZ [Suspect]
     Active Substance: TOFACITINIB CITRATE
     Dosage: 5 MG, TWICE DAILY (BID)
  2. XELJANZ [Suspect]
     Active Substance: TOFACITINIB CITRATE
     Dosage: 5 MG, UNK
     Dates: end: 20170802
  3. XELJANZ [Suspect]
     Active Substance: TOFACITINIB CITRATE
     Dosage: 5 MG, UNK
  4. XELJANZ [Suspect]
     Active Substance: TOFACITINIB CITRATE
     Dosage: 5 MG, UNK
     Dates: start: 201311

REACTIONS (14)
  - White blood cell count decreased [Unknown]
  - Pain [Not Recovered/Not Resolved]
  - Influenza [Unknown]
  - Tooth abscess [Unknown]
  - Joint injury [Unknown]
  - Nasopharyngitis [Unknown]
  - Musculoskeletal stiffness [Unknown]
  - Rash erythematous [Recovered/Resolved]
  - Road traffic accident [Unknown]
  - Interstitial lung disease [Unknown]
  - Pain in extremity [Unknown]
  - Drug ineffective [Unknown]
  - Malaise [Unknown]
  - Swelling [Recovered/Resolved]
